FAERS Safety Report 24174979 (Version 1)
Quarter: 2024Q3

REPORT INFORMATION
  Report Type: Spontaneous
  Country: JP (occurrence: JP)
  Receive Date: 20240805
  Receipt Date: 20240805
  Transmission Date: 20241017
  Serious: Yes (Other)
  Sender: DAIICHI
  Company Number: JP-DSJP-DSJ-2024-138244

PATIENT
  Age: 68 Year
  Sex: Male

DRUGS (6)
  1. RIFADIN [Interacting]
     Active Substance: RIFAMPIN
     Indication: Atypical mycobacterial infection
     Dosage: UNK
     Route: 048
  2. RIFADIN [Interacting]
     Active Substance: RIFAMPIN
     Dosage: UNK
     Route: 048
  3. EDOXABAN TOSYLATE [Interacting]
     Active Substance: EDOXABAN TOSYLATE
     Indication: Product used for unknown indication
     Dosage: 60 MG/DAY
     Route: 048
  4. EDOXABAN TOSYLATE [Interacting]
     Active Substance: EDOXABAN TOSYLATE
     Dosage: 60 MG/DAY
     Route: 048
  5. CLARITHROMYCIN [Interacting]
     Active Substance: CLARITHROMYCIN
     Indication: Atypical mycobacterial infection
     Dosage: UNK
     Route: 048
  6. CLARITHROMYCIN [Interacting]
     Active Substance: CLARITHROMYCIN
     Dosage: UNK
     Route: 048

REACTIONS (3)
  - Acute kidney injury [Unknown]
  - Drug interaction [Unknown]
  - Drug interaction [Unknown]
